FAERS Safety Report 10412037 (Version 1)
Quarter: 2014Q3

REPORT INFORMATION
  Report Type: Spontaneous
  Country: US (occurrence: None)
  Receive Date: 20140826
  Receipt Date: 20140826
  Transmission Date: 20150326
  Serious: Yes (Other)
  Sender: FDA-Public Use
  Company Number: None

PATIENT
  Sex: Female
  Weight: 58.97 kg

DRUGS (4)
  1. AMETHIA [Suspect]
     Active Substance: ETHINYL ESTRADIOL\LEVONORGESTREL
     Indication: VON WILLEBRAND^S DISEASE
     Route: 048
  2. DAYSEE [Suspect]
     Active Substance: ETHINYL ESTRADIOL\LEVONORGESTREL
     Indication: VON WILLEBRAND^S DISEASE
     Route: 048
  3. SEASONALE [Suspect]
     Active Substance: ETHINYL ESTRADIOL\LEVONORGESTREL
     Indication: IRON DEFICIENCY ANAEMIA
     Dosage: 1 TABLET PO QD
     Route: 048
  4. LOSEASONIQUE [Suspect]
     Active Substance: ETHINYL ESTRADIOL\LEVONORGESTREL
     Indication: IRON DEFICIENCY ANAEMIA
     Dosage: 1 TABLE PO QD
     Route: 048

REACTIONS (5)
  - Iron deficiency anaemia [None]
  - Haemorrhagic anaemia [None]
  - Coital bleeding [None]
  - Metrorrhagia [None]
  - Menorrhagia [None]
